FAERS Safety Report 14413022 (Version 1)
Quarter: 2018Q1

REPORT INFORMATION
  Report Type: Spontaneous
  Country: GB (occurrence: GB)
  Receive Date: 20180119
  Receipt Date: 20180119
  Transmission Date: 20180509
  Serious: Yes (Other)
  Sender: FDA-Public Use
  Company Number: GB-JNJFOC-20180122402

PATIENT
  Sex: Male

DRUGS (6)
  1. INFLIXIMAB, RECOMBINANT [Suspect]
     Active Substance: INFLIXIMAB
     Indication: AUTOIMMUNE HEPATITIS
     Dosage: 0, 2 AND 6 WEEKS FOLLOWED BY EVERY 8 WEEKS
     Route: 042
  2. INFLIXIMAB, RECOMBINANT [Suspect]
     Active Substance: INFLIXIMAB
     Indication: CHOLANGITIS SCLEROSING
     Dosage: 0, 2 AND 6 WEEKS FOLLOWED BY EVERY 8 WEEKS
     Route: 042
  3. INFLIXIMAB, RECOMBINANT [Suspect]
     Active Substance: INFLIXIMAB
     Indication: AUTOIMMUNE HEPATITIS
     Dosage: 0, 2 AND 6 WEEKS FOLLOWED BY EVERY 8 WEEKS??7 WEEKS LATER
     Route: 042
  4. INFLIXIMAB, RECOMBINANT [Suspect]
     Active Substance: INFLIXIMAB
     Indication: CHOLANGITIS SCLEROSING
     Dosage: 0, 2 AND 6 WEEKS FOLLOWED BY EVERY 8 WEEKS??7 WEEKS LATER
     Route: 042
  5. INFLIXIMAB, RECOMBINANT [Suspect]
     Active Substance: INFLIXIMAB
     Indication: CROHN^S DISEASE
     Dosage: 0, 2 AND 6 WEEKS FOLLOWED BY EVERY 8 WEEKS
     Route: 042
  6. INFLIXIMAB, RECOMBINANT [Suspect]
     Active Substance: INFLIXIMAB
     Indication: CROHN^S DISEASE
     Dosage: 0, 2 AND 6 WEEKS FOLLOWED BY EVERY 8 WEEKS??7 WEEKS LATER
     Route: 042

REACTIONS (2)
  - Drug ineffective [Unknown]
  - Cytomegalovirus viraemia [Unknown]
